FAERS Safety Report 14572216 (Version 2)
Quarter: 2018Q1

REPORT INFORMATION
  Report Type: Spontaneous
  Country: US (occurrence: US)
  Receive Date: 20180226
  Receipt Date: 20180311
  Transmission Date: 20180509
  Serious: No
  Sender: FDA-Public Use
  Company Number: US-JNJFOC-20180120666

PATIENT
  Sex: Female
  Weight: 47.63 kg

DRUGS (1)
  1. PANCREAZE [Suspect]
     Active Substance: PANCRELIPASE AMYLASE\PANCRELIPASE LIPASE\PANCRELIPASE PROTEASE
     Indication: PRODUCT USED FOR UNKNOWN INDICATION
     Dosage: EVERY TIME SHE EATS
     Route: 048

REACTIONS (3)
  - Oedema peripheral [Unknown]
  - Product formulation issue [Unknown]
  - Drug ineffective [Unknown]
